FAERS Safety Report 6612299-1 (Version None)
Quarter: 2010Q1

REPORT INFORMATION
  Report Type: 
  Country: None (occurrence: None)
  Receive Date: 20100303
  Receipt Date: 20100226
  Transmission Date: 20100710
  Serious: Yes (Other)
  Sender: FDA-Public Use
  Company Number: UM-PERRIGO-10US007474

PATIENT
  Age: 40 Year
  Sex: Female
  Weight: 106.58 kg

DRUGS (2)
  1. NAPROXEN SODIUM [Suspect]
     Indication: ABDOMINAL PAIN UPPER
     Dosage: 220 MG, 2-3 TIMES DAILY PRN
     Route: 048
     Dates: start: 20091106, end: 20091107
  2. NAPROXEN SODIUM [Suspect]
     Dosage: 220 MG, 4-5 TIMES DAILY PRN
     Route: 048
     Dates: start: 20091108, end: 20091113

REACTIONS (3)
  - CONDITION AGGRAVATED [None]
  - GASTRITIS [None]
  - INCORRECT DOSE ADMINISTERED [None]
